FAERS Safety Report 23415944 (Version 1)
Quarter: 2024Q1

REPORT INFORMATION
  Report Type: Spontaneous
  Country: FR (occurrence: FR)
  Receive Date: 20240118
  Receipt Date: 20240118
  Transmission Date: 20240410
  Serious: Yes (Hospitalization, Other)
  Sender: FDA-Public Use
  Company Number: FR-SA-2024SA016428

PATIENT
  Age: 36 Year
  Sex: Female

DRUGS (2)
  1. LEFLUNOMIDE [Suspect]
     Active Substance: LEFLUNOMIDE
     Indication: Rheumatoid arthritis
     Dosage: 100 MG, QD
     Dates: start: 200512
  2. METHOTREXATE [Concomitant]
     Active Substance: METHOTREXATE
     Indication: Rheumatoid arthritis
     Dosage: UNK
     Dates: start: 200505

REACTIONS (18)
  - Toxic epidermal necrolysis [Recovering/Resolving]
  - Rash maculo-papular [Recovering/Resolving]
  - Erythema [Recovering/Resolving]
  - Swelling face [Recovering/Resolving]
  - Skin lesion [Recovering/Resolving]
  - Pyrexia [Recovering/Resolving]
  - Cheilitis [Recovering/Resolving]
  - Oral mucosa erosion [Recovering/Resolving]
  - Angular cheilitis [Recovering/Resolving]
  - Conjunctivitis [Recovering/Resolving]
  - Skin plaque [Recovering/Resolving]
  - Pancytopenia [Recovering/Resolving]
  - Hepatic cytolysis [Recovering/Resolving]
  - General physical health deterioration [Recovering/Resolving]
  - Scab [Recovering/Resolving]
  - Keratitis [Recovering/Resolving]
  - Blindness [Unknown]
  - Generalised tonic-clonic seizure [Recovered/Resolved]
